FAERS Safety Report 16887878 (Version 2)
Quarter: 2019Q4

REPORT INFORMATION
  Report Type: Spontaneous
  Country: US (occurrence: US)
  Receive Date: 20191006
  Receipt Date: 20191120
  Transmission Date: 20200122
  Serious: No
  Sender: FDA-Public Use
  Company Number: US-ALEXION PHARMACEUTICALS INC.-A201914839

PATIENT
  Age: 51 Year
  Sex: Male
  Weight: 97.51 kg

DRUGS (2)
  1. SOLIRIS [Suspect]
     Active Substance: ECULIZUMAB
     Indication: MYASTHENIA GRAVIS
     Dosage: 900 MG, QW
     Route: 042
     Dates: start: 20181018, end: 20181116
  2. SOLIRIS [Suspect]
     Active Substance: ECULIZUMAB
     Dosage: 1200 MG, Q2W
     Route: 065
     Dates: start: 20181120

REACTIONS (1)
  - Product preparation issue [Recovered/Resolved]

NARRATIVE: CASE EVENT DATE: 20190920
